FAERS Safety Report 4677031-X (Version None)
Quarter: 2005Q2

REPORT INFORMATION
  Report Type: 
  Country: None (occurrence: None)
  Receive Date: 20050526
  Receipt Date: 20050330
  Transmission Date: 20051028
  Serious: Yes (Hospitalization)
  Sender: FDA-Public Use
  Company Number: WAES 0503USA05249

PATIENT
  Age: 82 Year
  Sex: Female

DRUGS (3)
  1. VYTORIN [Suspect]
     Indication: LIPIDS INCREASED
     Dosage: 10-40 MG
     Dates: start: 20050215, end: 20050315
  2. PERSANTINE [Concomitant]
  3. WELCHOL [Concomitant]

REACTIONS (1)
  - RHABDOMYOLYSIS [None]
